FAERS Safety Report 15057088 (Version 1)
Quarter: 2018Q2

REPORT INFORMATION
  Report Type: Spontaneous
  Country: US (occurrence: US)
  Receive Date: 20180604
  Receipt Date: 20180604
  Transmission Date: 20180711
  Serious: Yes (Hospitalization)
  Sender: FDA-Public Use
  Company Number: None

PATIENT
  Age: 56 Year
  Sex: Female

DRUGS (17)
  1. MAGNESIUM OX [Concomitant]
  2. XYLIMELTS [Concomitant]
  3. CHLOROTHALID [Concomitant]
  4. ELIQUIS [Concomitant]
     Active Substance: APIXABAN
  5. HUMIRA [Suspect]
     Active Substance: ADALIMUMAB
     Indication: RHEUMATOID ARTHRITIS
     Route: 058
     Dates: start: 20160627
  6. PLAQUENIL [Concomitant]
     Active Substance: HYDROXYCHLOROQUINE SULFATE
  7. METHOTREXATE. [Concomitant]
     Active Substance: METHOTREXATE
  8. FLUCONAZOLE/ INJ [Concomitant]
  9. FEMHRT [Concomitant]
     Active Substance: ETHINYL ESTRADIOL\NORETHINDRONE ACETATE
  10. FOLIC ACID. [Concomitant]
     Active Substance: FOLIC ACID
  11. RESTASIS [Concomitant]
     Active Substance: CYCLOSPORINE
  12. VITAMIN D3 [Concomitant]
     Active Substance: CHOLECALCIFEROL
  13. SYNTHROID [Concomitant]
     Active Substance: LEVOTHYROXINE SODIUM
  14. PREDNISONE. [Concomitant]
     Active Substance: PREDNISONE
  15. CALCIUM [Concomitant]
     Active Substance: CALCIUM
  16. ZICAM NOS [Concomitant]
     Active Substance: ACETAMINOPHEN\CHLORPHENIRAMINE MALEATE\DEXTROMETHORPHAN HYDROBROMIDE\PHENYLEPHRINE HYDROCHLORIDE OR ACETAMINOPHEN\DEXTROMETHORPHAN HYDROBROMIDE\DOXYLAMINE SUCCINATE\PHENYLEPHRINE HYDROCHLORIDE OR HOMEOPATHICS
  17. FAMOTIDINE. [Concomitant]
     Active Substance: FAMOTIDINE

REACTIONS (1)
  - Hospitalisation [None]

NARRATIVE: CASE EVENT DATE: 20180509
